FAERS Safety Report 5502291-2 (Version None)
Quarter: 2007Q4

REPORT INFORMATION
  Report Type: 
  Country: None (occurrence: None)
  Receive Date: 20071026
  Receipt Date: 20071012
  Transmission Date: 20080405
  Serious: Yes (Other)
  Sender: FDA-Public Use
  Company Number: DSJ-2007-06912

PATIENT
  Age: 60 Year
  Sex: Male

DRUGS (7)
  1. OLMESARTAN MEDOXOMIL [Suspect]
     Indication: HYPERTENSION
     Dosage: 20 MG, PER ORAL
     Route: 048
     Dates: start: 20070801, end: 20070910
  2. ACTOS [Suspect]
     Indication: DIABETES MELLITUS
     Dosage: 30  MG, PER ORAL
     Route: 048
     Dates: start: 20070723, end: 20070831
  3. KINEX (EPALRESTAT) (EPALRESTAT) [Suspect]
     Indication: DIABETES MELLITUS
     Dosage: 150 MG (50 MG), PER ORAL
     Route: 048
     Dates: start: 20070723, end: 20070910
  4. AMARYL [Suspect]
     Indication: DIABETES MELLITUS
     Dosage: 2 MG (1 MG), PER ORAL
     Route: 048
     Dates: start: 20070817, end: 20070910
  5. BASTAMION (VOGLIBOSE) (VOGLIBOSE) [Suspect]
     Indication: DIABETES MELLITUS
     Dosage: 3 DOSAGE FORMS (1 DOSAGE FORMS), PER ORAL
     Route: 048
     Dates: start: 20070817, end: 20070910
  6. GOSHAJINKIGAN (HERBAL EXTRACT NOS) (HERBAL EXTRACT NOS) [Suspect]
     Indication: HYPERTENSION
     Dosage: 1 DOSAGE FORMS, PER ORAL
     Route: 048
     Dates: start: 20070817, end: 20070910
  7. TENORMIN [Concomitant]

REACTIONS (6)
  - BLOOD PRESSURE INCREASED [None]
  - HEPATIC FUNCTION ABNORMAL [None]
  - LIVER DISORDER [None]
  - NO THERAPEUTIC RESPONSE [None]
  - PARAESTHESIA [None]
  - URINE COLOUR ABNORMAL [None]
